FAERS Safety Report 21986903 (Version 2)
Quarter: 2023Q1

REPORT INFORMATION
  Report Type: Spontaneous
  Country: IT (occurrence: IT)
  Receive Date: 20230213
  Receipt Date: 20230220
  Transmission Date: 20230418
  Serious: Yes (Hospitalization)
  Sender: FDA-Public Use
  Company Number: None

PATIENT
  Age: 82 Year
  Sex: Female
  Weight: 57 kg

DRUGS (10)
  1. EDOXABAN TOSYLATE [Suspect]
     Active Substance: EDOXABAN TOSYLATE
     Indication: Atrial fibrillation
     Dosage: 60 MG, QD
     Route: 048
     Dates: start: 20221229, end: 20230117
  2. FENTANYL [Suspect]
     Active Substance: FENTANYL
     Indication: Osteoarthritis
     Dosage: 50 UG, ONCE EVERY 3 D
     Route: 062
     Dates: start: 20221215, end: 20230124
  3. LANSOPRAZOLE [Concomitant]
     Active Substance: LANSOPRAZOLE
     Indication: Chronic gastritis
     Dosage: 30 MG, QD
     Route: 048
  4. BISOPROLOL [Concomitant]
     Active Substance: BISOPROLOL
     Indication: Atrial fibrillation
     Dosage: 2.5 MG, BID
     Route: 048
  5. SYMBICORT [Concomitant]
     Active Substance: BUDESONIDE\FORMOTEROL FUMARATE DIHYDRATE
     Indication: Chronic obstructive pulmonary disease
     Dosage: 160+4.5 MCG 2 PUFF X 2 DAY
     Route: 049
  6. LANOXIN [Concomitant]
     Active Substance: DIGOXIN
     Indication: Atrial fibrillation
     Dosage: 0.062 MG, QD
     Route: 048
  7. PREDNISONE [Concomitant]
     Active Substance: PREDNISONE
     Indication: Arthritis
     Dosage: 25 MG ((DELTACORTENE 25 MG 1/2 TABLET DAILY))
     Route: 065
  8. ACETAMINOPHEN [Concomitant]
     Active Substance: ACETAMINOPHEN
     Indication: Product used for unknown indication
     Dosage: 1000 MG, PARACETAMOL 1000 MG AB (NEVER ADMINISTERED IN OUR DEPARTMENT)
     Route: 065
  9. PURSENNIDE [SENNA ALEXANDRINA LEAF] [Concomitant]
     Indication: Product used for unknown indication
     Dosage: UNK, QD
     Route: 065
  10. LASIX [Concomitant]
     Active Substance: FUROSEMIDE
     Indication: Hypertensive heart disease
     Dosage: 25 MG, QD (LASIX 25 MG 1 TABLET DAILY)
     Route: 048

REACTIONS (3)
  - Hepatitis [Recovering/Resolving]
  - Coagulation time prolonged [Recovering/Resolving]
  - Haematoma [Recovering/Resolving]

NARRATIVE: CASE EVENT DATE: 20230117
